FAERS Safety Report 23848794 (Version 1)
Quarter: 2024Q2

REPORT INFORMATION
  Report Type: Spontaneous
  Country: US (occurrence: None)
  Receive Date: 20240510
  Receipt Date: 20240510
  Transmission Date: 20240717
  Serious: Yes (Hospitalization)
  Sender: FDA-Public Use
  Company Number: None

PATIENT
  Age: 65 Year
  Sex: Female
  Weight: 84.15 kg

DRUGS (1)
  1. KISQALI [Suspect]
     Active Substance: RIBOCICLIB
     Indication: Breast cancer
     Dosage: 600 MG DAILLY ORAL
     Route: 048
     Dates: start: 20240404, end: 20240429

REACTIONS (2)
  - Generalised oedema [None]
  - Oedema peripheral [None]

NARRATIVE: CASE EVENT DATE: 20240429
